FAERS Safety Report 20769819 (Version 5)
Quarter: 2024Q3

REPORT INFORMATION
  Report Type: Spontaneous
  Country: US (occurrence: US)
  Receive Date: 20220429
  Receipt Date: 20240729
  Transmission Date: 20241016
  Serious: Yes (Life-Threatening, Hospitalization, Other)
  Sender: VERTEX
  Company Number: US-VERTEX PHARMACEUTICALS-2022-006394

PATIENT
  Age: 51 Year
  Sex: Female
  Weight: 56 kg

DRUGS (31)
  1. TRIKAFTA [Suspect]
     Active Substance: ELEXACAFTOR\IVACAFTOR\TEZACAFTOR
     Indication: Cystic fibrosis
     Dosage: 2 ORANGE TABS IN AM AND 1 BLUE TAB IN PM
     Route: 048
     Dates: start: 20200201
  2. TRIKAFTA [Suspect]
     Active Substance: ELEXACAFTOR\IVACAFTOR\TEZACAFTOR
     Dosage: REDUCED DOSE (2 AM PILLS EVERYDAY)
     Route: 048
  3. PULMOZYME [Suspect]
     Active Substance: DORNASE ALFA
     Indication: Product used for unknown indication
     Route: 065
  4. BOTOX [Concomitant]
     Active Substance: ONABOTULINUMTOXINA
  5. MAGNESIUM [Concomitant]
     Active Substance: MAGNESIUM
  6. BACTRIM [Concomitant]
     Active Substance: SULFAMETHOXAZOLE\TRIMETHOPRIM
  7. VITAMIN C [Concomitant]
     Active Substance: ASCORBIC ACID
  8. ATENOLOL [Concomitant]
     Active Substance: ATENOLOL
  9. PREDNISONE [Concomitant]
     Active Substance: PREDNISONE
  10. CYCLOBENZAPRINE HYDROCHLORIDE [Concomitant]
     Active Substance: CYCLOBENZAPRINE HYDROCHLORIDE
  11. KLONOPIN [Concomitant]
     Active Substance: CLONAZEPAM
  12. SERTRALINE HYDROCHLORIDE [Concomitant]
     Active Substance: SERTRALINE HYDROCHLORIDE
  13. VITAMIN D3 [Concomitant]
     Active Substance: CHOLECALCIFEROL
     Dosage: 100000/G POWDER
  14. VITAMIN E [Concomitant]
     Active Substance: .ALPHA.-TOCOPHEROL
     Dosage: 1000 UNIT
  15. ELIQUIS [Concomitant]
     Active Substance: APIXABAN
  16. CELLCEPT [Concomitant]
     Active Substance: MYCOPHENOLATE MOFETIL
  17. FLOVENT HFA [Concomitant]
     Active Substance: FLUTICASONE PROPIONATE
  18. LYRICA [Concomitant]
     Active Substance: PREGABALIN
  19. LEVOTHYROXINE SODIUM [Concomitant]
     Active Substance: LEVOTHYROXINE SODIUM
  20. ACTIGALL [Concomitant]
     Active Substance: URSODIOL
  21. OMEPRAZOLE [Concomitant]
     Active Substance: OMEPRAZOLE
  22. ACYCLOVIR [Concomitant]
     Active Substance: ACYCLOVIR
  23. FAMOTIDINE [Concomitant]
     Active Substance: FAMOTIDINE
  24. HUMALOG [Concomitant]
     Active Substance: INSULIN LISPRO
     Dosage: 100/ ML VIAL
  25. ZENPEP [Concomitant]
     Active Substance: PANCRELIPASE AMYLASE\PANCRELIPASE LIPASE\PANCRELIPASE PROTEASE
     Dosage: 10-32-42K
  26. PROGRAF [Concomitant]
     Active Substance: TACROLIMUS
  27. MIRALAX [Concomitant]
     Active Substance: POLYETHYLENE GLYCOL 3350
     Dosage: 17G/DOSE POWDER
  28. GOLYTELY [Concomitant]
     Active Substance: POLYETHYLENE GLYCOL 3350\POTASSIUM CHLORIDE\SODIUM BICARBONATE\SODIUM CHLORIDE\SODIUM SULFATE
     Dosage: 236-22.74G
  29. CALCIUM\CHOLECALCIFEROL [Concomitant]
     Active Substance: CALCIUM\CHOLECALCIFEROL
     Dosage: 600 MG-500
  30. ATIVAN [Concomitant]
     Active Substance: LORAZEPAM
  31. CAYSTON [Concomitant]
     Active Substance: AZTREONAM

REACTIONS (2)
  - Pneumonia [Unknown]
  - Acute respiratory failure [Unknown]

NARRATIVE: CASE EVENT DATE: 20220317
